FAERS Safety Report 6190705-7 (Version None)
Quarter: 2009Q2

REPORT INFORMATION
  Report Type: 
  Country: None (occurrence: None)
  Receive Date: 20090508
  Receipt Date: 20081121
  Transmission Date: 20091009
  Serious: Yes (Other)
  Sender: FDA-Public Use
  Company Number: 54599

PATIENT
  Sex: Female

DRUGS (3)
  1. ADRIAMYCIN PFS [Suspect]
     Indication: BREAST CANCER
     Dosage: 30MG/M2, 60MG/M2
     Dates: start: 20080926
  2. ADRIAMYCIN PFS [Suspect]
     Indication: BREAST CANCER
     Dosage: 30MG/M2, 60MG/M2
     Dates: start: 20081017
  3. ADRIAMYCIN PFS [Suspect]
     Indication: BREAST CANCER
     Dosage: 30MG/M2, 60MG/M2
     Dates: start: 20081107

REACTIONS (1)
  - HYPERSENSITIVITY [None]
